FAERS Safety Report 7908466-7 (Version None)
Quarter: 2011Q4

REPORT INFORMATION
  Report Type: 
  Country: None (occurrence: None)
  Receive Date: 20111111
  Receipt Date: 20111104
  Transmission Date: 20120403
  Serious: Yes (Hospitalization, Other)
  Sender: FDA-Public Use
  Company Number: CO-JNJFOC-20111102877

PATIENT
  Age: 54 Year

DRUGS (1)
  1. RISPERDAL CONSTA [Suspect]
     Indication: SCHIZOPHRENIA
     Route: 065
     Dates: start: 20110728

REACTIONS (2)
  - RESTLESSNESS [None]
  - SUICIDE ATTEMPT [None]
